FAERS Safety Report 6861573-2 (Version None)
Quarter: 2010Q3

REPORT INFORMATION
  Report Type: 
  Country: None (occurrence: None)
  Receive Date: 20100721
  Receipt Date: 20100709
  Transmission Date: 20110219
  Serious: Yes (Life-Threatening)
  Sender: FDA-Public Use
  Company Number: US-BAYER-201027675NA

PATIENT
  Age: 42 Year
  Sex: Female

DRUGS (2)
  1. AVELOX [Suspect]
     Indication: CELLULITIS
     Route: 048
  2. TYLENOL W/ CODEINE NO. 3 [Concomitant]

REACTIONS (8)
  - ANAPHYLACTIC REACTION [None]
  - BURNING SENSATION [None]
  - EYE SWELLING [None]
  - FATIGUE [None]
  - HYPERSOMNIA [None]
  - OBSTRUCTIVE AIRWAYS DISORDER [None]
  - PARAESTHESIA ORAL [None]
  - SWELLING FACE [None]
